FAERS Safety Report 8588258-9 (Version None)
Quarter: 2012Q3

REPORT INFORMATION
  Report Type: 
  Country: None (occurrence: None)
  Receive Date: 20120803
  Receipt Date: 20120803
  Transmission Date: 20120928
  Serious: Yes (Other)
  Sender: FDA-Public Use
  Company Number: None

PATIENT
  Age: 74 Year
  Sex: Male
  Weight: 69.2189 kg

DRUGS (12)
  1. MORPHINE [Concomitant]
  2. MIRALAX [Concomitant]
  3. SORAFENIB (BAYER) [Suspect]
     Indication: METASTATIC MALIGNANT MELANOMA
     Dosage: 400MG BID PO
     Route: 048
     Dates: start: 20120620, end: 20120716
  4. ATENOLOL [Concomitant]
  5. ZOFRAN [Concomitant]
  6. CELEXA [Concomitant]
  7. NEURONTIN [Concomitant]
  8. MORPHINE [Concomitant]
  9. COLCHICINE [Concomitant]
  10. BORTEZOMIB (MILLENIUM) [Suspect]
     Indication: METASTATIC MALIGNANT MELANOMA
     Dosage: 1.3 MG/M2 IV WEEKLY
     Route: 042
     Dates: start: 20120620, end: 20120705
  11. ATIVAN [Concomitant]
  12. SIMVASTATIN [Concomitant]

REACTIONS (1)
  - HERPES ZOSTER [None]
